FAERS Safety Report 18020516 (Version 1)
Quarter: 2020Q3

REPORT INFORMATION
  Report Type: Spontaneous
  Country: US (occurrence: US)
  Receive Date: 20200714
  Receipt Date: 20200714
  Transmission Date: 20201103
  Serious: No
  Sender: FDA-Public Use
  Company Number: US-SA-2020SA179633

PATIENT

DRUGS (9)
  1. AUBAGIO [Suspect]
     Active Substance: TERIFLUNOMIDE
     Indication: PRODUCT USE IN UNAPPROVED INDICATION
     Dosage: 1 DF, QD
     Route: 048
  2. MUCINEX [Concomitant]
     Active Substance: GUAIFENESIN
  3. FISH OIL [Concomitant]
     Active Substance: FISH OIL
  4. PROZAC [Concomitant]
     Active Substance: FLUOXETINE HYDROCHLORIDE
  5. VIT D [Concomitant]
     Active Substance: VITAMIN D NOS
  6. CLONAZEPAM. [Concomitant]
     Active Substance: CLONAZEPAM
  7. IBUPROFEN. [Concomitant]
     Active Substance: IBUPROFEN
  8. VITAMINS NOS [Concomitant]
     Active Substance: VITAMINS
  9. TYLENOL [Concomitant]
     Active Substance: ACETAMINOPHEN

REACTIONS (1)
  - Product dose omission issue [Unknown]
